FAERS Safety Report 7435418-6 (Version None)
Quarter: 2011Q2

REPORT INFORMATION
  Report Type: 
  Country: None (occurrence: None)
  Receive Date: 20110425
  Receipt Date: 20110420
  Transmission Date: 20111010
  Serious: Yes (Disabling)
  Sender: FDA-Public Use
  Company Number: FR-MERCK-1104FRA00113

PATIENT
  Age: 83 Year
  Sex: Male

DRUGS (8)
  1. ACEBUTOLOL [Concomitant]
     Route: 048
  2. ACARBOSE [Concomitant]
     Route: 048
  3. CLOPIDOGREL [Concomitant]
     Route: 048
  4. SODIUM CHLORIDE [Concomitant]
     Route: 047
  5. ATORVASTATIN CALCIUM [Concomitant]
     Route: 048
  6. JANUVIA [Suspect]
     Indication: TYPE 2 DIABETES MELLITUS
     Route: 048
     Dates: start: 20101101, end: 20110215
  7. ESCITALOPRAM OXALATE [Concomitant]
     Indication: DEPRESSION
     Route: 048
  8. POVIDONE [Concomitant]
     Route: 047

REACTIONS (4)
  - MUSCULOSKELETAL STIFFNESS [None]
  - FATIGUE [None]
  - CONSTIPATION [None]
  - VERTIGO [None]
